FAERS Safety Report 5503415-3 (Version None)
Quarter: 2007Q4

REPORT INFORMATION
  Report Type: 
  Country: None (occurrence: None)
  Receive Date: 20071031
  Receipt Date: 20071022
  Transmission Date: 20080405
  Serious: Yes (Other)
  Sender: FDA-Public Use
  Company Number: SE-PFIZER INC-2007087861

PATIENT
  Sex: Male

DRUGS (7)
  1. CABERGOLINE [Suspect]
     Dosage: DAILY DOSE:2MG-TEXT:DAILY  TDD:2 MG
     Route: 048
     Dates: start: 20020920, end: 20070502
  2. MADOPARK [Concomitant]
  3. STALEVO 100 [Concomitant]
     Dosage: TEXT:150 MG/375 MG/200MG
     Route: 048
  4. CARBIDOPA AND LEVODOPA [Concomitant]
     Dosage: TEXT:100MG/25MG
     Route: 048
  5. FOLACIN [Concomitant]
     Dosage: DAILY DOSE:5MG
     Route: 048
  6. BEHEPAN [Concomitant]
     Dosage: DAILY DOSE:1MG
     Route: 048
  7. SINEMET MITE [Concomitant]
     Route: 048

REACTIONS (1)
  - AORTIC VALVE INCOMPETENCE [None]
